FAERS Safety Report 6642528-X (Version None)
Quarter: 2010Q1

REPORT INFORMATION
  Report Type: 
  Country: None (occurrence: None)
  Receive Date: 20100316
  Receipt Date: 20100305
  Transmission Date: 20100710
  Serious: Yes (Other)
  Sender: FDA-Public Use
  Company Number: 2009-03471

PATIENT
  Age: 58 Year
  Sex: Female
  Weight: 96 kg

DRUGS (15)
  1. VELCADE [Suspect]
     Indication: MULTIPLE MYELOMA
     Dosage: 2.5 MG
  2. ENOXAPARIN SODIUM [Concomitant]
  3. OMEPRAZOLE [Concomitant]
  4. ACYCLOVIR [Concomitant]
  5. ONDANSETRON [Concomitant]
  6. NOVOLOG [Concomitant]
  7. AMITRIPTYLINE HYDROCHLORIDE [Concomitant]
  8. CALCIFEROL (ERGOCALCIFEROL) [Concomitant]
  9. EZETIMIBE [Concomitant]
  10. FERROGRADUMET (FERROUS SULFATE) [Concomitant]
  11. CILAZAPRIL (CILAZAPRIL) [Concomitant]
  12. FUROSEMIDE [Concomitant]
  13. METFORMIN HCL [Concomitant]
  14. PAMIDRONATE DISODIUM [Concomitant]
  15. DEXAMETHASONE [Concomitant]

REACTIONS (3)
  - DRUG INEFFECTIVE [None]
  - MALIGNANT NEOPLASM PROGRESSION [None]
  - MULTIPLE MYELOMA [None]
